FAERS Safety Report 7138444-X (Version None)
Quarter: 2010Q4

REPORT INFORMATION
  Report Type: 
  Country: None (occurrence: None)
  Receive Date: 20101206
  Receipt Date: 20101124
  Transmission Date: 20110411
  Serious: Yes (Disabling)
  Sender: FDA-Public Use
  Company Number: PHHY2010IT76301

PATIENT
  Sex: Female

DRUGS (2)
  1. ZOMETA [Suspect]
     Indication: METASTASES TO BONE
     Dosage: 4 MG MONTHLY
     Route: 042
     Dates: start: 20080501, end: 20100920
  2. ZOMETA [Suspect]
     Indication: BREAST CANCER

REACTIONS (2)
  - BONE DISORDER [None]
  - OSTEONECROSIS [None]
